FAERS Safety Report 15158277 (Version 2)
Quarter: 2018Q3

REPORT INFORMATION
  Report Type: Spontaneous
  Country: JP (occurrence: JP)
  Receive Date: 20180718
  Receipt Date: 20180720
  Transmission Date: 20181010
  Serious: Yes (Hospitalization)
  Sender: FDA-Public Use
  Company Number: JP-ASTRAZENECA-2018SE90789

PATIENT
  Age: 56 Year
  Sex: Female

DRUGS (5)
  1. SYMBICORT [Suspect]
     Active Substance: BUDESONIDE\FORMOTEROL FUMARATE DIHYDRATE
     Indication: ASTHMA
     Dosage: 2DF IN THE MORNING, 3DF BEFORE BEDTIME, (5DFDAILY) AS REQUIRED
     Route: 055
  2. TIOTROPIUM BROMIDE HYDRATE [Concomitant]
     Dosage: DOSE UNKNOWN
     Route: 065
  3. THEOPHYLLINE [Concomitant]
     Active Substance: THEOPHYLLINE ANHYDROUS
     Dosage: DOSE UNKNOWN
     Route: 065
  4. MONTELUKAST [Concomitant]
     Active Substance: MONTELUKAST SODIUM
     Indication: ASTHMA
     Route: 048
  5. SYMBICORT [Suspect]
     Active Substance: BUDESONIDE\FORMOTEROL FUMARATE DIHYDRATE
     Indication: ASTHMA
     Dosage: 2 DF MORNING AND BEFORE BEDTIME, AS REQUIRED AS REQUIRED
     Route: 055

REACTIONS (4)
  - Anxiety [Unknown]
  - Respiratory tract infection viral [Recovering/Resolving]
  - Asthma [Recovering/Resolving]
  - Insomnia [Unknown]

NARRATIVE: CASE EVENT DATE: 20161104
